FAERS Safety Report 5478702-8 (Version None)
Quarter: 2007Q4

REPORT INFORMATION
  Report Type: 
  Country: None (occurrence: None)
  Receive Date: 20071005
  Receipt Date: 20070925
  Transmission Date: 20080405
  Serious: Yes (Other)
  Sender: FDA-Public Use
  Company Number: DE-ABBOTT-07P-062-0418307-00

PATIENT
  Age: 69 Year
  Sex: Female
  Weight: 94.5 kg

DRUGS (14)
  1. ZEMPLAR [Suspect]
     Indication: HYPERPARATHYROIDISM
     Route: 042
     Dates: start: 20070129, end: 20070424
  2. ZEMPLAR [Suspect]
     Route: 042
     Dates: start: 20061127, end: 20070129
  3. ZEMPLAR [Suspect]
     Route: 042
     Dates: start: 20070424
  4. METOPROLOL SUCCINATE [Concomitant]
     Indication: DRUG USE FOR UNKNOWN INDICATION
     Route: 048
     Dates: start: 20061127
  5. ASPIRIN [Concomitant]
     Indication: DRUG USE FOR UNKNOWN INDICATION
     Route: 048
     Dates: start: 20061127, end: 20070221
  6. ASPIRIN [Concomitant]
     Route: 048
     Dates: start: 20070221
  7. RAMIPRIL [Concomitant]
     Indication: DRUG USE FOR UNKNOWN INDICATION
     Route: 048
     Dates: start: 20061127
  8. FUROSEMID 40 [Concomitant]
     Indication: DRUG USE FOR UNKNOWN INDICATION
     Route: 048
     Dates: start: 20061127
  9. CERTOPARIN [Concomitant]
     Indication: DRUG USE FOR UNKNOWN INDICATION
     Route: 058
     Dates: start: 20070221
  10. AMITRIPTYLINE HYDROCHLORIDE [Concomitant]
     Indication: DRUG USE FOR UNKNOWN INDICATION
     Route: 048
     Dates: start: 20070221
  11. PANTOPRAZOLE SODIUM [Concomitant]
     Indication: DRUG USE FOR UNKNOWN INDICATION
     Route: 048
     Dates: start: 20070221
  12. VOLTAREN [Concomitant]
     Indication: DRUG USE FOR UNKNOWN INDICATION
     Route: 048
     Dates: start: 20070221
  13. RAMIPRIL [Concomitant]
     Route: 048
     Dates: start: 20070221
  14. INSUMAN COMP. 25 [Concomitant]
     Indication: DIALYSIS
     Route: 042

REACTIONS (1)
  - BACK PAIN [None]
